FAERS Safety Report 7746144-8 (Version None)
Quarter: 2011Q3

REPORT INFORMATION
  Report Type: 
  Country: None (occurrence: None)
  Receive Date: 20110913
  Receipt Date: 20110831
  Transmission Date: 20111222
  Serious: Yes (Hospitalization)
  Sender: FDA-Public Use
  Company Number: US-ELI_LILLY_AND_COMPANY-US201108006551

PATIENT
  Sex: Female

DRUGS (16)
  1. VOLTAREN [Concomitant]
  2. DAYPRO [Concomitant]
  3. RESTASIS [Concomitant]
  4. KLONOPIN [Concomitant]
  5. SYNTHROID [Concomitant]
  6. FORTEO [Suspect]
     Indication: OSTEOPOROSIS
     Dosage: 20 UG, QD
     Route: 065
     Dates: start: 20110501, end: 20110802
  7. ZANAFLEX [Concomitant]
  8. PLAVIX [Concomitant]
  9. TYLENOL                                 /SCH/ [Concomitant]
  10. CARDIZEM [Concomitant]
  11. LIPITOR [Concomitant]
  12. PRILOSEC [Concomitant]
  13. VICODIN [Concomitant]
  14. FORTEO [Suspect]
     Dosage: 20 UG, QD
     Route: 065
     Dates: start: 20110818
  15. PROVENTIL                               /USA/ [Concomitant]
  16. LIDODERM [Concomitant]

REACTIONS (5)
  - SHOULDER OPERATION [None]
  - HYPOTHYROIDISM [None]
  - BLOOD PRESSURE DECREASED [None]
  - FEELING ABNORMAL [None]
  - EPISTAXIS [None]
